FAERS Safety Report 5921570-8 (Version None)
Quarter: 2008Q4

REPORT INFORMATION
  Report Type: 
  Country: None (occurrence: None)
  Receive Date: 20081017
  Receipt Date: 20080911
  Transmission Date: 20090506
  Serious: No
  Sender: FDA-Public Use
  Company Number: US-KINGPHARMUSA00001-K200801065

PATIENT

DRUGS (15)
  1. SYNERCID [Suspect]
     Indication: ENTEROCOCCAL INFECTION
     Dosage: UNK, SINGLE
     Route: 042
     Dates: start: 20080910, end: 20080910
  2. INVANZ [Concomitant]
  3. PEPCID [Concomitant]
  4. PPN [Concomitant]
  5. FLUCONAZOLE [Concomitant]
  6. LASIX [Concomitant]
  7. SYNTHROID [Concomitant]
  8. MEGACE [Concomitant]
  9. LOPRESSOR [Concomitant]
  10. MORPHIN                            /00036303/ [Concomitant]
  11. ZOFRAN [Concomitant]
  12. PREDNISONE TAB [Concomitant]
  13. ALDACTONE [Concomitant]
  14. VANCOMYCIN HYDROCHLORIDE [Concomitant]
     Route: 048
  15. EFFEXOR [Concomitant]

REACTIONS (2)
  - EXPIRED DRUG ADMINISTERED [None]
  - NO ADVERSE EVENT [None]
